FAERS Safety Report 6736638-6 (Version None)
Quarter: 2010Q2

REPORT INFORMATION
  Report Type: 
  Country: None (occurrence: None)
  Receive Date: 20100521
  Receipt Date: 20100510
  Transmission Date: 20101027
  Serious: Yes (Other)
  Sender: FDA-Public Use
  Company Number: A0860303A

PATIENT
  Age: 86 Year
  Sex: Male

DRUGS (4)
  1. PROMACTA [Suspect]
     Indication: IDIOPATHIC THROMBOCYTOPENIC PURPURA
     Dosage: 50MG PER DAY
     Dates: start: 20090408, end: 20090801
  2. CORTICOSTEROIDS [Concomitant]
     Indication: IDIOPATHIC THROMBOCYTOPENIC PURPURA
  3. CYCLOPHOSPHAMIDE [Concomitant]
     Indication: IDIOPATHIC THROMBOCYTOPENIC PURPURA
  4. IMMUNE GLOBULIN INTRAVENOUS (HUMAN) [Concomitant]
     Indication: IDIOPATHIC THROMBOCYTOPENIC PURPURA

REACTIONS (2)
  - DRUG INEFFECTIVE [None]
  - SARCOMA [None]
